FAERS Safety Report 7688590-7 (Version None)
Quarter: 2011Q3

REPORT INFORMATION
  Report Type: 
  Country: None (occurrence: None)
  Receive Date: 20110817
  Receipt Date: 20110810
  Transmission Date: 20111222
  Serious: Yes (Hospitalization, Other)
  Sender: FDA-Public Use
  Company Number: TW-BAYER-2011-059677

PATIENT
  Age: 56 Year
  Sex: Male
  Weight: 81 kg

DRUGS (15)
  1. NOVOMIX [INSULIN ASPART,INSULIN ASPART PROTAMINE] [Concomitant]
     Dosage: 51 U, QD
     Dates: start: 20110301
  2. ROSUVASTATIN CALCIUM [Concomitant]
     Indication: HYPERLIPIDAEMIA
     Dosage: DAILY DOSE 20 MG
     Dates: start: 20081208, end: 20110102
  3. ROSUVASTATIN CALCIUM [Concomitant]
     Dosage: DAILY DOSE 10 MG
     Dates: start: 20110103, end: 20110228
  4. SITAGLIPTIN PHOSPHATE [Concomitant]
     Indication: DIABETES MELLITUS
     Dosage: 100 MG, QD
     Dates: start: 20091109
  5. ROSUVASTATIN CALCIUM [Concomitant]
     Dosage: DAILY DOSE 10 MG
     Dates: start: 20110524
  6. NOVOMIX [INSULIN ASPART,INSULIN ASPART PROTAMINE] [Concomitant]
     Dosage: 49 U, QD
     Dates: start: 20110103, end: 20110228
  7. NOVOMIX [INSULIN ASPART,INSULIN ASPART PROTAMINE] [Concomitant]
     Indication: DIABETES MELLITUS
     Dosage: 33 U, QD
     Dates: start: 20101011, end: 20110102
  8. NOVOMIX [INSULIN ASPART,INSULIN ASPART PROTAMINE] [Concomitant]
     Dosage: 51 U, QD
     Dates: start: 20101011, end: 20110102
  9. ROSUVASTATIN CALCIUM [Concomitant]
     Dosage: DAILY DOSE 1 MG
     Dates: start: 20110301, end: 20110523
  10. NOVOMIX [INSULIN ASPART,INSULIN ASPART PROTAMINE] [Concomitant]
     Dosage: 33 U, QD
     Dates: start: 20110301
  11. METOPROLOL SUCCINATE [Concomitant]
     Indication: HYPERTENSION
     Dosage: 100 MG, QD
     Dates: start: 20110201
  12. SORAFENIB (RAF KINASE INHIBITOR) [Suspect]
     Indication: HEPATIC NEOPLASM MALIGNANT
     Dosage: DAILY DOSE 400 MG
     Route: 048
     Dates: start: 20101020
  13. CISAPRIDE [Concomitant]
  14. FUROSEMIDE [Concomitant]
     Indication: OEDEMA PERIPHERAL
     Dosage: DAILY DOSE 20 MG
     Dates: start: 20081208
  15. LOSARTAN POTASSIUM [Concomitant]
     Indication: HYPERTENSION
     Dosage: DAILY DOSE 50 MG
     Dates: start: 20081208

REACTIONS (1)
  - LOSS OF CONSCIOUSNESS [None]
